FAERS Safety Report 24684348 (Version 2)
Quarter: 2024Q4

REPORT INFORMATION
  Report Type: Spontaneous
  Country: US (occurrence: US)
  Receive Date: 20241202
  Receipt Date: 20241219
  Transmission Date: 20250115
  Serious: Yes (Death, Hospitalization, Other)
  Sender: DR REDDYS
  Company Number: None

PATIENT
  Age: 39 Year
  Sex: Female

DRUGS (6)
  1. DOXORUBICIN [Suspect]
     Active Substance: DOXORUBICIN
     Indication: Malignant fibrous histiocytoma
  2. METOPROLOL [Suspect]
     Active Substance: METOPROLOL
     Indication: Sinus tachycardia
  3. MESNA [Suspect]
     Active Substance: MESNA
     Indication: Malignant fibrous histiocytoma
  4. IFOSFAMIDE [Suspect]
     Active Substance: IFOSFAMIDE
     Indication: Malignant fibrous histiocytoma
  5. VERAPAMIL [Concomitant]
     Active Substance: VERAPAMIL HYDROCHLORIDE
     Indication: Sinus tachycardia
  6. BENADRYL [Concomitant]
     Active Substance: DIPHENHYDRAMINE HYDROCHLORIDE
     Indication: Sinus tachycardia

REACTIONS (5)
  - Renal impairment [Fatal]
  - Metabolic acidosis [Fatal]
  - Staphylococcal bacteraemia [Fatal]
  - Tachypnoea [Fatal]
  - Drug ineffective for unapproved indication [Unknown]
